FAERS Safety Report 16226461 (Version 3)
Quarter: 2019Q3

REPORT INFORMATION
  Report Type: Spontaneous
  Country: US (occurrence: US)
  Receive Date: 20190423
  Receipt Date: 20190809
  Transmission Date: 20191004
  Serious: No
  Sender: FDA-Public Use
  Company Number: US-ELI_LILLY_AND_COMPANY-US201904010748

PATIENT
  Sex: Male

DRUGS (4)
  1. GLIMEPIRIDE. [Concomitant]
     Active Substance: GLIMEPIRIDE
     Indication: TYPE 2 DIABETES MELLITUS
     Dosage: 4 MG
  2. BERBERINE [Concomitant]
     Active Substance: BERBERINE
     Indication: TYPE 2 DIABETES MELLITUS
     Dosage: 500 MG
  3. HUMALOG MIX75/25 [Suspect]
     Active Substance: INSULIN LISPRO
     Indication: PRODUCT USED FOR UNKNOWN INDICATION
     Dosage: UNK, UNKNOWN
     Route: 065
  4. HUMALOG MIX75/25 [Suspect]
     Active Substance: INSULIN LISPRO
     Dosage: UNK, UNKNOWN
     Route: 065

REACTIONS (7)
  - Blood glucose increased [Recovered/Resolved]
  - Incorrect dose administered [Unknown]
  - Glycosylated haemoglobin increased [Unknown]
  - Eye disorder [Recovering/Resolving]
  - Blood glucose decreased [Recovered/Resolved]
  - Drug ineffective [Unknown]
  - Blood glucose increased [Recovering/Resolving]
